FAERS Safety Report 4845087-7 (Version None)
Quarter: 2005Q4

REPORT INFORMATION
  Report Type: 
  Country: None (occurrence: None)
  Receive Date: 20051115
  Receipt Date: 20050913
  Transmission Date: 20060501
  Serious: Yes (Hospitalization)
  Sender: FDA-Public Use
  Company Number: 417728

PATIENT
  Age: 52 Year
  Sex: Female
  Weight: 98.9 kg

DRUGS (4)
  1. PEGASYS [Suspect]
     Indication: HEPATITIS C VIRUS
     Dosage: 180 MCG 1 PER WEEK SUBCUTANEOUS
     Route: 058
     Dates: start: 20041031, end: 20050905
  2. RIBAVIRIN [Suspect]
     Indication: HEPATITIS C VIRUS
     Dosage: 2 PER DAY ORAL
     Route: 048
     Dates: start: 20041031, end: 20050907
  3. SYNTHROID [Concomitant]
  4. ZANTAC [Concomitant]

REACTIONS (5)
  - CHEST PAIN [None]
  - DYSPNOEA [None]
  - HAEMOGLOBIN DECREASED [None]
  - INSOMNIA [None]
  - VOMITING [None]
